FAERS Safety Report 20926698 (Version 1)
Quarter: 2022Q2

REPORT INFORMATION
  Report Type: Spontaneous
  Country: US (occurrence: None)
  Receive Date: 20220607
  Receipt Date: 20220607
  Transmission Date: 20220721
  Serious: No
  Sender: FDA-Public Use
  Company Number: None

PATIENT
  Age: 60 Year
  Sex: Female
  Weight: 73.8 kg

DRUGS (4)
  1. PAXLOVID [Suspect]
     Active Substance: NIRMATRELVIR\RITONAVIR
     Indication: COVID-19
     Dosage: OTHER QUANTITY : 3 TABLET(S);?FREQUENCY : TWICE A DAY;?
     Route: 048
  2. PENICILLIN [Concomitant]
     Active Substance: PENICILLIN
  3. VITAMIN D [Concomitant]
     Active Substance: VITAMIN D NOS
  4. CALCIUM [Concomitant]
     Active Substance: CALCIUM

REACTIONS (7)
  - Nausea [None]
  - Vomiting [None]
  - Diarrhoea [None]
  - Headache [None]
  - Dysgeusia [None]
  - Malaise [None]
  - Asthenia [None]
